FAERS Safety Report 6304340-0 (Version None)
Quarter: 2009Q3

REPORT INFORMATION
  Report Type: 
  Country: None (occurrence: None)
  Receive Date: 20090811
  Receipt Date: 20090804
  Transmission Date: 20100115
  Serious: Yes (Other)
  Sender: FDA-Public Use
  Company Number: US-BAYER-200921418NA

PATIENT
  Age: 31 Year
  Sex: Female
  Weight: 97 kg

DRUGS (8)
  1. MIRENA [Suspect]
     Indication: CONTRACEPTION
     Dosage: CONTINUOUD
     Route: 015
     Dates: start: 20090506, end: 20090512
  2. NEXIUM [Concomitant]
  3. CYMBALTA [Concomitant]
  4. TRAMADOL [Concomitant]
  5. XANAX [Concomitant]
  6. VALTREX [Concomitant]
  7. NEURONTIN [Concomitant]
  8. FLUTICASONE [Concomitant]

REACTIONS (10)
  - ABDOMINAL PAIN LOWER [None]
  - BLADDER DISORDER [None]
  - BLADDER NECK OBSTRUCTION [None]
  - DYSURIA [None]
  - IUCD COMPLICATION [None]
  - MICTURITION DISORDER [None]
  - OVARIAN CYST [None]
  - PELVIC PAIN [None]
  - PROCEDURAL PAIN [None]
  - UTERINE RUPTURE [None]
